FAERS Safety Report 5415446-2 (Version None)
Quarter: 2007Q3

REPORT INFORMATION
  Report Type: 
  Country: None (occurrence: None)
  Receive Date: 20070815
  Receipt Date: 20070808
  Transmission Date: 20080115
  Serious: Yes (Other)
  Sender: FDA-Public Use
  Company Number: A0662116A

PATIENT
  Age: 54 Year
  Sex: Female

DRUGS (5)
  1. ALLI [Suspect]
     Route: 048
  2. TYLENOL (CAPLET) [Suspect]
     Indication: COUGH
  3. SUDAFED 12 HOUR [Suspect]
  4. HEARTBURN MEDICATION [Concomitant]
  5. ASPIRIN [Concomitant]

REACTIONS (3)
  - HEPATIC ENZYME INCREASED [None]
  - NASOPHARYNGITIS [None]
  - PHARMACEUTICAL PRODUCT COMPLAINT [None]
